FAERS Safety Report 6933367-0 (Version None)
Quarter: 2010Q3

REPORT INFORMATION
  Report Type: 
  Country: None (occurrence: None)
  Receive Date: 20100820
  Receipt Date: 20100812
  Transmission Date: 20110219
  Serious: No
  Sender: FDA-Public Use
  Company Number: US-US-EMD SERONO, INC.-7013034

PATIENT
  Sex: Female
  Weight: 64 kg

DRUGS (9)
  1. REBIF [Suspect]
     Indication: MULTIPLE SCLEROSIS
     Route: 058
     Dates: start: 20090810, end: 20100310
  2. REBIF [Suspect]
     Route: 058
     Dates: start: 20100318, end: 20100420
  3. CYMBALTA [Concomitant]
     Indication: PAIN
  4. CYMBALTA [Concomitant]
     Indication: DEPRESSION
  5. PROVIGIL [Concomitant]
     Indication: FATIGUE
  6. KLONOPIN [Concomitant]
     Indication: MUSCLE SPASMS
  7. KLONOPIN [Concomitant]
     Indication: INSOMNIA
  8. ENABLEX [Concomitant]
     Indication: MICTURITION URGENCY
  9. VITAMIN B-12 [Concomitant]
     Route: 030

REACTIONS (3)
  - CARDIAC PACEMAKER INSERTION [None]
  - NEUTROPENIA [None]
  - URINARY TRACT INFECTION [None]
